FAERS Safety Report 16947222 (Version 1)
Quarter: 2019Q4

REPORT INFORMATION
  Report Type: Spontaneous
  Country: US (occurrence: US)
  Receive Date: 20190901
  Receipt Date: 20190901
  Transmission Date: 20200122
  Serious: No
  Sender: FDA-Public Use
  Company Number: None

PATIENT
  Age: 53 Year
  Sex: Female

DRUGS (1)
  1. ORENCIA [Suspect]
     Active Substance: ABATACEPT
     Route: 047
     Dates: start: 20180825

REACTIONS (2)
  - Therapy cessation [None]
  - Therapeutic response decreased [None]

NARRATIVE: CASE EVENT DATE: 20190901
